FAERS Safety Report 8893731 (Version 1)
Quarter: 2012Q4

REPORT INFORMATION
  Report Type: 
  Country: US (occurrence: US)
  Receive Date: 20121108
  Receipt Date: 20121108
  Transmission Date: 20130627
  Serious: No
  Sender: FDA-Public Use
  Company Number: US-PFIZER INC-2012277537

PATIENT
  Age: 74 Year
  Sex: Male
  Weight: 77.1 kg

DRUGS (4)
  1. INLYTA [Suspect]
     Indication: CANCER
     Dosage: 5 mg, 2x/day
     Dates: start: 20121103
  2. XANAX [Concomitant]
     Indication: ANXIETY
     Dosage: 1 mg, 1x/day
  3. XANAX [Concomitant]
     Indication: SLEEP PROBLEM
  4. LORCET [Concomitant]
     Indication: CHRONIC PAIN
     Dosage: 10 mg, as needed

REACTIONS (4)
  - Migraine [Not Recovered/Not Resolved]
  - Oropharyngeal pain [Not Recovered/Not Resolved]
  - Eye pain [Not Recovered/Not Resolved]
  - Rhinalgia [Not Recovered/Not Resolved]
